FAERS Safety Report 7037683-6 (Version None)
Quarter: 2010Q4

REPORT INFORMATION
  Report Type: 
  Country: None (occurrence: None)
  Receive Date: 20101011
  Receipt Date: 20100929
  Transmission Date: 20110411
  Serious: Yes (Hospitalization, Other)
  Sender: FDA-Public Use
  Company Number: US-ELI_LILLY_AND_COMPANY-US201009004106

PATIENT
  Sex: Female

DRUGS (19)
  1. FORTEO [Suspect]
     Indication: OSTEOPOROSIS
     Dosage: 20 UG, DAILY (1/D)
     Dates: start: 20091125
  2. PRILOSEC [Concomitant]
     Dosage: 20 MG, UNK
  3. METOCLOPRAMIDE [Concomitant]
     Dosage: 10 MG, UNK
  4. LEVOTHYROXINE [Concomitant]
     Dosage: 88 UG, UNK
  5. MEDROXYPROGESTERONE [Concomitant]
     Dosage: 2.5 MG, UNK
  6. ESTRADIOL [Concomitant]
     Dosage: 1 MG, UNK
  7. NOVOLOG [Concomitant]
  8. TUMS /00108001/ [Concomitant]
  9. BENEFIBER [Concomitant]
  10. ASPIRIN [Concomitant]
     Dosage: 81 MG, UNK
  11. LOVASTATIN [Concomitant]
  12. LISINOPRIL [Concomitant]
     Dosage: 5 MG, UNK
  13. ALENDRONATE SODIUM [Concomitant]
     Dosage: 70 MG, UNK
  14. CALCIUM W/VITAMIN D NOS [Concomitant]
     Dosage: 600 MG, UNK
  15. BETHANECHOL [Concomitant]
     Dosage: 25 MG, UNK
  16. FLUDROCORTISONE [Concomitant]
     Dosage: 0.1 MG, UNK
  17. OSTEO BI-FLEX [Concomitant]
  18. TYLENOL (CAPLET) [Concomitant]
     Dosage: 650 MG, UNK
  19. VITAMIN D [Concomitant]
     Dosage: 125 MG, UNK

REACTIONS (8)
  - ARTHRALGIA [None]
  - ASTHENIA [None]
  - BLOOD GLUCOSE FLUCTUATION [None]
  - BLOOD SODIUM DECREASED [None]
  - CEREBROVASCULAR ACCIDENT [None]
  - FATIGUE [None]
  - HOSPITALISATION [None]
  - LUNG DISORDER [None]
